FAERS Safety Report 6410890-9 (Version None)
Quarter: 2009Q4

REPORT INFORMATION
  Report Type: 
  Country: None (occurrence: None)
  Receive Date: 20091022
  Receipt Date: 20091007
  Transmission Date: 20100525
  Serious: Yes (Other)
  Sender: FDA-Public Use
  Company Number: CA-ROCHE-663583

PATIENT
  Age: 52 Year
  Sex: Male

DRUGS (17)
  1. SAQUINAVIR [Suspect]
     Indication: HIV INFECTION
     Route: 065
  2. NELFINAVIR MESILATE [Suspect]
     Indication: DRUG USE FOR UNKNOWN INDICATION
     Route: 065
  3. ZIDOVUDINE [Suspect]
     Indication: HIV INFECTION
     Route: 065
  4. LAMIVUDINE [Suspect]
     Indication: HIV INFECTION
     Route: 065
  5. DIDANOSINE [Suspect]
     Indication: HIV INFECTION
     Route: 065
  6. STAVUDINE [Suspect]
     Indication: HIV INFECTION
     Route: 065
  7. ABACAVIR [Suspect]
     Indication: HIV INFECTION
     Route: 065
  8. NEVIRAPINE [Suspect]
     Indication: DRUG USE FOR UNKNOWN INDICATION
     Route: 065
  9. DELAVIRDINE [Suspect]
     Indication: HIV INFECTION
     Route: 065
  10. EFAVIRENZ [Suspect]
     Indication: HIV INFECTION
     Route: 065
  11. INDINAVIR [Suspect]
     Indication: HIV INFECTION
     Route: 065
  12. LOPINAVIR [Suspect]
     Indication: HIV INFECTION
     Route: 065
  13. RITONAVIR [Suspect]
     Indication: HIV INFECTION
     Route: 065
  14. TENOFOVIR [Suspect]
     Indication: HIV INFECTION
     Route: 065
  15. DARUNAVIR [Suspect]
     Indication: HIV INFECTION
     Route: 065
  16. ETRAVIRINE [Suspect]
     Indication: HIV INFECTION
     Route: 065
  17. RALTEGRAVIR [Suspect]
     Indication: HIV INFECTION
     Route: 065

REACTIONS (5)
  - DIPLOPIA [None]
  - EYELID PTOSIS [None]
  - LIPODYSTROPHY ACQUIRED [None]
  - MITOCHONDRIAL TOXICITY [None]
  - PROGRESSIVE EXTERNAL OPHTHALMOPLEGIA [None]
